FAERS Safety Report 9639005 (Version 1)
Quarter: 2013Q4

REPORT INFORMATION
  Report Type: Spontaneous
  Country: IT (occurrence: None)
  Receive Date: 20131018
  Receipt Date: 20131018
  Transmission Date: 20140711
  Serious: Yes (Other)
  Sender: FDA-Public Use
  Company Number: SYM-2013-11668

PATIENT
  Age: 37 Year
  Sex: Female

DRUGS (3)
  1. VALIUM [Suspect]
     Indication: PRODUCT USED FOR UNKNOWN INDICATION
     Route: 048
     Dates: start: 20130615, end: 20130615
  2. ZOLPIDEM (ZOLPIDEM) [Suspect]
     Indication: PRODUCT USED FOR UNKNOWN INDICATION
     Dates: start: 20130615, end: 20130615
  3. LORMETAZEPAM [Suspect]
     Indication: DRUG ABUSE
     Route: 048
     Dates: start: 20130615, end: 20130615

REACTIONS (2)
  - Sopor [None]
  - Intentional overdose [None]
